FAERS Safety Report 7501758-5 (Version None)
Quarter: 2011Q2

REPORT INFORMATION
  Report Type: 
  Country: None (occurrence: None)
  Receive Date: 20110523
  Receipt Date: 20110523
  Transmission Date: 20111010
  Serious: Yes (Disabling)
  Sender: FDA-Public Use
  Company Number: None

PATIENT
  Age: 58 Year
  Sex: Female
  Weight: 56.8 kg

DRUGS (1)
  1. CEFTRIAONE ONE GRAM APOTEX [Suspect]
     Indication: CHOLANGITIS
     Dosage: ONE GRAM EVERY 24 HOURS INTRAVENOUS (041)
     Route: 042
     Dates: start: 20110513, end: 20110519

REACTIONS (6)
  - EYE IRRITATION [None]
  - ABDOMINAL PAIN [None]
  - VOMITING [None]
  - DRUG INTOLERANCE [None]
  - LACRIMATION INCREASED [None]
  - NAUSEA [None]
